FAERS Safety Report 21705576 (Version 1)
Quarter: 2022Q4

REPORT INFORMATION
  Report Type: Report from Study
  Country: CA (occurrence: CA)
  Receive Date: 20221209
  Receipt Date: 20221209
  Transmission Date: 20230113
  Serious: Yes (Other)
  Sender: FDA-Public Use
  Company Number: CA-JNJFOC-20221209265

PATIENT
  Age: 55 Year
  Sex: Female
  Weight: 93 kg

DRUGS (1)
  1. REMICADE [Suspect]
     Active Substance: INFLIXIMAB
     Indication: Crohn^s disease
     Dosage: REPORTED STRENGTH: 10 (MG/KG MILLIGRAM(S)/KILOGRAM )
     Route: 042
     Dates: start: 20060307, end: 20221202

REACTIONS (1)
  - Anal cancer [Unknown]
